FAERS Safety Report 4330244-9 (Version None)
Quarter: 2004Q1

REPORT INFORMATION
  Report Type: 
  Country: None (occurrence: None)
  Receive Date: 20040329
  Receipt Date: 20040311
  Transmission Date: 20041129
  Serious: Yes (Hospitalization)
  Sender: FDA-Public Use
  Company Number: J081-002-001601

PATIENT
  Age: 82 Year
  Sex: Female
  Weight: 42 kg

DRUGS (7)
  1. ARICEPT [Suspect]
     Indication: DEMENTIA ALZHEIMER'S TYPE
     Dosage: 3 MG, 1 IN 1 D, ORAL
     Route: 048
     Dates: start: 20030930, end: 20031006
  2. AMITRIPTYLINE HYDROCHLORIDE [Suspect]
     Indication: DEPRESSION
     Dosage: 10 MG, ORAL
     Route: 048
     Dates: start: 20040130, end: 20040223
  3. ATARAX [Concomitant]
  4. THEO-DUR [Concomitant]
  5. POLARAMIN (DEXXHLORPHENIRAMINE MALEATE) [Concomitant]
  6. FLUTIDE (FLUTICASONE PROPIOANTE) [Concomitant]
  7. ZOLPIDEM TARTRATE [Concomitant]

REACTIONS (23)
  - BINOCULAR EYE MOVEMENT DISORDER [None]
  - BLOOD ALKALINE PHOSPHATASE INCREASED [None]
  - BLOOD CHLORIDE DECREASED [None]
  - BLOOD GLUCOSE INCREASED [None]
  - BLOOD LACTATE DEHYDROGENASE INCREASED [None]
  - BLOOD PRESSURE INCREASED [None]
  - BODY TEMPERATURE DECREASED [None]
  - CARDIAC MURMUR [None]
  - CEREBROVASCULAR ACCIDENT [None]
  - COMA [None]
  - DELIRIUM [None]
  - DEPRESSED LEVEL OF CONSCIOUSNESS [None]
  - EPILEPSY [None]
  - FAECAL INCONTINENCE [None]
  - FIBRIN D DIMER [None]
  - HAEMATOCRIT DECREASED [None]
  - HAEMOGLOBIN DECREASED [None]
  - HYPOKINESIA [None]
  - LYMPHOCYTE PERCENTAGE DECREASED [None]
  - MUSCLE RIGIDITY [None]
  - NEUTROPHIL PERCENTAGE INCREASED [None]
  - RED BLOOD CELL COUNT DECREASED [None]
  - URINARY INCONTINENCE [None]
